FAERS Safety Report 4659913-8 (Version None)
Quarter: 2005Q2

REPORT INFORMATION
  Report Type: 
  Country: None (occurrence: None)
  Receive Date: 20050512
  Receipt Date: 20050503
  Transmission Date: 20051028
  Serious: Yes (Other)
  Sender: FDA-Public Use
  Company Number: PHFR2005GB01711

PATIENT
  Age: 52 Year
  Sex: Female

DRUGS (2)
  1. TERBINAFINE [Suspect]
     Indication: NAIL INFECTION
     Dosage: 250 MG, QD
     Route: 048
     Dates: start: 20050401, end: 20050404
  2. FLUOXETINE [Suspect]
     Indication: DEPRESSION
     Dosage: 20 MG, QD
     Route: 048
     Dates: start: 19990202

REACTIONS (2)
  - DEPRESSION [None]
  - DEPRESSION SUICIDAL [None]
